FAERS Safety Report 15190852 (Version 1)
Quarter: 2018Q3

REPORT INFORMATION
  Report Type: Spontaneous
  Country: US (occurrence: US)
  Receive Date: 20180625
  Receipt Date: 20180625
  Transmission Date: 20181010
  Serious: Yes (Hospitalization)
  Sender: FDA-Public Use
  Company Number: None

PATIENT
  Age: 17 Year
  Sex: Female
  Weight: 50.4 kg

DRUGS (1)
  1. LO LOESTRIN FE [Suspect]
     Active Substance: ETHINYL ESTRADIOL\NORETHINDRONE ACETATE
     Indication: MENORRHAGIA
     Dosage: ?          QUANTITY:26 DF DOSAGE FORM;?
     Route: 048
     Dates: start: 20171022, end: 20180207

REACTIONS (3)
  - Contusion [None]
  - Alopecia [None]
  - Depression [None]

NARRATIVE: CASE EVENT DATE: 20180205
